FAERS Safety Report 9057272 (Version 1)
Quarter: 2013Q1

REPORT INFORMATION
  Report Type: Report from Study
  Country: JP (occurrence: JP)
  Receive Date: 20130131
  Receipt Date: 20130131
  Transmission Date: 20140127
  Serious: Yes (Other)
  Sender: FDA-Public Use
  Company Number: JP-GLAXOSMITHKLINE-B0860312A

PATIENT
  Age: 66 None
  Sex: Female
  Weight: 52 kg

DRUGS (4)
  1. TYKERB [Suspect]
     Indication: BREAST CANCER
     Route: 048
     Dates: start: 20101118
  2. XELODA [Suspect]
     Route: 048
     Dates: start: 20101117
  3. TRASTUZUMAB [Concomitant]
     Route: 042
     Dates: start: 20060309
  4. PYDOXAL [Concomitant]
     Indication: PALMAR-PLANTAR ERYTHRODYSAESTHESIA SYNDROME
     Route: 048

REACTIONS (5)
  - Cellulitis [Recovering/Resolving]
  - Diarrhoea [Recovered/Resolved]
  - Stomatitis [Recovered/Resolved]
  - Lymphoedema [Recovering/Resolving]
  - Decreased appetite [Recovering/Resolving]
